FAERS Safety Report 8078396-1 (Version None)
Quarter: 2012Q1

REPORT INFORMATION
  Report Type: 
  Country: None (occurrence: None)
  Receive Date: 20120123
  Receipt Date: 20120109
  Transmission Date: 20120608
  Serious: Yes (Death, Other)
  Sender: FDA-Public Use
  Company Number: JPI-P-006849

PATIENT
  Age: 31 Year
  Sex: Female

DRUGS (8)
  1. ALCOHOL [Suspect]
     Indication: PRODUCT USED FOR UNKNOWN INDICATION
     Dosage: (UNKNOWN)
     Dates: end: 20090322
  2. UNSPECIFIED SEDATIVE-HYPNOTIC [Suspect]
     Indication: PRODUCT USED FOR UNKNOWN INDICATION
     Dates: end: 20090322
  3. UNSPECIFIED PSYCHOTROPICS [Suspect]
     Indication: PRODUCT USED FOR UNKNOWN INDICATION
     Dates: end: 20090322
  4. UNSPECIFIED ANTIDEPRESSANTS [Suspect]
     Indication: PRODUCT USED FOR UNKNOWN INDICATION
     Dates: end: 20090322
  5. XYREM [Suspect]
     Indication: NARCOLEPSY
     Dosage: 4 GM (2 GM, 2 IN 1 D), ORAL
     Route: 048
     Dates: start: 20070518
  6. UNSPECIFIED ANTIEPILEPTIC [Suspect]
     Indication: PRODUCT USED FOR UNKNOWN INDICATION
     Dates: end: 20090322
  7. ANESTHETICS AND THERAPEUTIC GASES AND UNSPECIFIED GENERAL ANESTHETICS [Suspect]
     Indication: PRODUCT USED FOR UNKNOWN INDICATION
     Dates: end: 20090322
  8. UNSPECIFIED ANTIPARKINSONISM [Suspect]
     Indication: PRODUCT USED FOR UNKNOWN INDICATION
     Dates: end: 20090322

REACTIONS (5)
  - TOXICITY TO VARIOUS AGENTS [None]
  - ALCOHOL POISONING [None]
  - ACCIDENTAL POISONING [None]
  - MENTAL DISORDER [None]
  - ABNORMAL BEHAVIOUR [None]
